FAERS Safety Report 9032226 (Version 1)
Quarter: 2013Q1

REPORT INFORMATION
  Report Type: Spontaneous
  Country: FR (occurrence: FR)
  Receive Date: 20130122
  Receipt Date: 20130122
  Transmission Date: 20140127
  Serious: Yes (Life-Threatening, Hospitalization)
  Sender: FDA-Public Use
  Company Number: FR-009507513-1301FRA008722

PATIENT
  Sex: Female

DRUGS (3)
  1. ZOELY [Suspect]
     Indication: FIBROMA
     Dosage: 1 DF, UNK
     Route: 048
     Dates: start: 201203, end: 201301
  2. AVLOCARDYL  LP [Concomitant]
     Indication: MIGRAINE
     Dosage: UNK
  3. AVLOCARDYL  LP [Concomitant]
     Indication: EXTRASYSTOLES

REACTIONS (2)
  - Pulmonary embolism [Recovered/Resolved]
  - Off label use [Unknown]
